FAERS Safety Report 25590871 (Version 1)
Quarter: 2025Q3

REPORT INFORMATION
  Report Type: Spontaneous
  Country: US (occurrence: None)
  Receive Date: 20250721
  Receipt Date: 20250721
  Transmission Date: 20251021
  Serious: No
  Sender: FDA-CTU
  Company Number: None

PATIENT
  Sex: Female

DRUGS (11)
  1. BOSULIF [Suspect]
     Active Substance: BOSUTINIB MONOHYDRATE
     Indication: Chronic myeloid leukaemia
     Dosage: FREQUENCY : DAILY;?
     Route: 048
     Dates: start: 20240327
  2. ALBUTEROL AER HFA [Concomitant]
  3. ALPRAZOLAM TAB 1MG [Concomitant]
  4. AMIODARONE [Concomitant]
     Active Substance: AMIODARONE
  5. AMLODIPINE [Concomitant]
     Active Substance: AMLODIPINE BESYLATE
  6. ARIPIPRAZOLE TAB 2MG [Concomitant]
  7. ARIPIPRAZOLE TAB 5MG [Concomitant]
  8. ATORVASTATIN TAB 10MG [Concomitant]
  9. BIOTIN TAB 1000MCG [Concomitant]
  10. BOOSTRIX INJ [Concomitant]
  11. BOTOX [Concomitant]
     Active Substance: ONABOTULINUMTOXINA

REACTIONS (4)
  - Bone infarction [None]
  - Therapy interrupted [None]
  - Nausea [None]
  - Vomiting [None]
